FAERS Safety Report 5569701-6 (Version None)
Quarter: 2007Q4

REPORT INFORMATION
  Report Type: 
  Country: None (occurrence: None)
  Receive Date: 20071220
  Receipt Date: 20071127
  Transmission Date: 20080405
  Serious: No
  Sender: FDA-Public Use
  Company Number: US-BOEHRINGER INGELHEIM PHARMACEUTICALS, INC.-2007-BP-25249BP

PATIENT
  Age: 65 Year
  Sex: Male

DRUGS (3)
  1. FLOMAX [Suspect]
     Indication: CARDIOVASCULAR DISORDER
     Route: 048
     Dates: start: 20070701
  2. FLOMAX [Suspect]
     Indication: POLLAKIURIA
  3. ADVIL LIQUI-GELS [Concomitant]

REACTIONS (2)
  - CHEST DISCOMFORT [None]
  - MASTOID DISORDER [None]
